FAERS Safety Report 5410053-X (Version None)
Quarter: 2007Q3

REPORT INFORMATION
  Report Type: 
  Country: None (occurrence: None)
  Receive Date: 20070809
  Receipt Date: 20070731
  Transmission Date: 20080115
  Serious: Yes (Hospitalization)
  Sender: FDA-Public Use
  Company Number: GB-ABBOTT-07P-167-0376522-00

PATIENT
  Sex: Male

DRUGS (4)
  1. CLARITHROMYCIN [Suspect]
     Indication: SICKLE CELL ANAEMIA WITH CRISIS
     Route: 048
     Dates: start: 20070726, end: 20070727
  2. CLARITHROMYCIN [Suspect]
     Route: 042
     Dates: start: 20070729
  3. CLARITHROMYCIN [Suspect]
     Indication: SICKLE CELL ANAEMIA WITH CRISIS
     Route: 048
     Dates: start: 20070727, end: 20070729
  4. MORPHINE [Concomitant]
     Indication: DRUG USE FOR UNKNOWN INDICATION
     Route: 042

REACTIONS (1)
  - JAUNDICE [None]
